FAERS Safety Report 5217956-X (Version None)
Quarter: 2007Q1

REPORT INFORMATION
  Report Type: 
  Country: None (occurrence: None)
  Receive Date: 20070124
  Receipt Date: 20070112
  Transmission Date: 20070707
  Serious: Yes (Other)
  Sender: FDA-Public Use
  Company Number: PHBS2007NO00646

PATIENT
  Age: 61 Year
  Sex: Female

DRUGS (2)
  1. LEVAXIN [Concomitant]
     Indication: HYPOTHYROIDISM
  2. GLEEVEC [Suspect]
     Indication: GASTROINTESTINAL STROMAL TUMOUR
     Dosage: 400 MG/DAY
     Dates: start: 20061024

REACTIONS (4)
  - BLOOD THYROID STIMULATING HORMONE INCREASED [None]
  - FEELING COLD [None]
  - HAEMOGLOBIN DECREASED [None]
  - HYPOTHYROIDISM [None]
